FAERS Safety Report 7429304-5 (Version None)
Quarter: 2011Q2

REPORT INFORMATION
  Report Type: 
  Country: None (occurrence: None)
  Receive Date: 20110418
  Receipt Date: 20110418
  Transmission Date: 20111010
  Serious: Yes (Other)
  Sender: FDA-Public Use
  Company Number: None

PATIENT
  Age: 26 Year
  Sex: Female
  Weight: 66.2252 kg

DRUGS (3)
  1. SERTRALINE HYDROCHLORIDE [Suspect]
     Indication: DEPRESSION
     Dosage: 150MG DAILY PO
     Route: 048
     Dates: start: 20090312, end: 20090312
  2. SERTRALINE HYDROCHLORIDE [Suspect]
     Indication: ANXIETY
     Dosage: 150MG DAILY PO
     Route: 048
     Dates: start: 20090312, end: 20090312
  3. ZOLOFT [Suspect]

REACTIONS (3)
  - DYSPNOEA [None]
  - PRODUCT SUBSTITUTION ISSUE [None]
  - DIZZINESS [None]
